FAERS Safety Report 7796187-3 (Version None)
Quarter: 2011Q4

REPORT INFORMATION
  Report Type: 
  Country: None (occurrence: None)
  Receive Date: 20111004
  Receipt Date: 20110919
  Transmission Date: 20120403
  Serious: Yes (Other)
  Sender: FDA-Public Use
  Company Number: GB-WATSON-2011-15763

PATIENT
  Age: 14 Year
  Sex: Female

DRUGS (3)
  1. PREDNISOLONE [Suspect]
     Indication: IMMUNOSUPPRESSION
     Dosage: 1 MG/KG, (UP TO 60 MG); DOSES REDUCED TO 10 MG/DAY FOR THE FIRST 6 MOS
     Route: 048
  2. CYCLOPHOSPHAMIDE [Suspect]
     Indication: IMMUNOSUPPRESSION
  3. CYCLOSPORINE [Suspect]
     Indication: IMMUNOSUPPRESSION
     Dosage: UNKNOWN
     Route: 065

REACTIONS (7)
  - OTITIS MEDIA [None]
  - URINARY TRACT INFECTION [None]
  - GASTROENTERITIS [None]
  - LOWER RESPIRATORY TRACT INFECTION [None]
  - ALOPECIA [None]
  - INFERTILITY [None]
  - INFECTIOUS MONONUCLEOSIS [None]
